FAERS Safety Report 17862822 (Version 1)
Quarter: 2020Q2

REPORT INFORMATION
  Report Type: Report from Study
  Country: None (occurrence: US)
  Receive Date: 20200605
  Receipt Date: 20200605
  Transmission Date: 20200714
  Serious: Yes (Hospitalization)
  Sender: FDA-Public Use
  Company Number: US-ABBVIE-20K-163-3382950-00

PATIENT
  Age: 52 Year
  Sex: Female

DRUGS (3)
  1. PLAQUENIL [Concomitant]
     Active Substance: HYDROXYCHLOROQUINE SULFATE
     Indication: PRODUCT USED FOR UNKNOWN INDICATION
  2. HUMIRA [Suspect]
     Active Substance: ADALIMUMAB
     Indication: ANKYLOSING SPONDYLITIS
     Route: 058
     Dates: start: 201905, end: 202003
  3. HUMIRA [Suspect]
     Active Substance: ADALIMUMAB
     Indication: RHEUMATOID ARTHRITIS
     Route: 058
     Dates: start: 2020

REACTIONS (12)
  - Myopathy [Recovering/Resolving]
  - Bursitis [Recovering/Resolving]
  - Viral infection [Recovered/Resolved]
  - Fatigue [Not Recovered/Not Resolved]
  - Fibromyalgia [Recovering/Resolving]
  - Pain [Recovering/Resolving]
  - Anxiety [Unknown]
  - Arthralgia [Unknown]
  - Blood pressure increased [Recovered/Resolved]
  - Joint swelling [Unknown]
  - Gait disturbance [Recovering/Resolving]
  - Joint stiffness [Unknown]

NARRATIVE: CASE EVENT DATE: 202003
